FAERS Safety Report 13067192 (Version 1)
Quarter: 2016Q4

REPORT INFORMATION
  Report Type: Spontaneous
  Country: US (occurrence: US)
  Receive Date: 20161227
  Receipt Date: 20161227
  Transmission Date: 20170207
  Serious: Yes (Hospitalization)
  Sender: FDA-Public Use
  Company Number: PHEH2016US033619

PATIENT
  Age: 39 Year
  Sex: Female

DRUGS (1)
  1. MEKINIST [Suspect]
     Active Substance: TRAMETINIB DIMETHYL SULFOXIDE
     Indication: CEREBRAL DISORDER
     Dosage: 2 MG, QD
     Route: 048
     Dates: start: 20161130, end: 20161217

REACTIONS (4)
  - Pyrexia [Unknown]
  - Rash [Unknown]
  - Product use issue [Unknown]
  - Vomiting [Unknown]

NARRATIVE: CASE EVENT DATE: 20161217
